FAERS Safety Report 13105694 (Version 1)
Quarter: 2017Q1

REPORT INFORMATION
  Report Type: Spontaneous
  Country: US (occurrence: US)
  Receive Date: 20170111
  Receipt Date: 20170111
  Transmission Date: 20170428
  Serious: No
  Sender: FDA-Public Use
  Company Number: US-ELI_LILLY_AND_COMPANY-US201701000108

PATIENT
  Sex: Female

DRUGS (1)
  1. TALTZ [Suspect]
     Active Substance: IXEKIZUMAB
     Indication: PSORIASIS
     Dosage: 80 MG, UNKNOWN
     Route: 058
     Dates: start: 2016

REACTIONS (7)
  - Drug dose omission [Recovered/Resolved]
  - Psoriasis [Unknown]
  - Injection site reaction [Unknown]
  - Injection site erythema [Unknown]
  - Nasopharyngitis [Recovered/Resolved]
  - Injection site pain [Unknown]
  - Injection site swelling [Unknown]
